FAERS Safety Report 5846751-3 (Version None)
Quarter: 2008Q3

REPORT INFORMATION
  Report Type: 
  Country: None (occurrence: None)
  Receive Date: 20080815
  Receipt Date: 20080806
  Transmission Date: 20090109
  Serious: Yes (Other)
  Sender: FDA-Public Use
  Company Number: FR-AVENTIS-200817353GDDC

PATIENT

DRUGS (26)
  1. GLYBURIDE [Suspect]
  2. METFORMIN HCL [Suspect]
  3. DIAZEPAM [Suspect]
  4. CARBUTAMIDE [Suspect]
  5. ACARBOSE [Suspect]
  6. GLICLAZIDE [Suspect]
  7. REPAGLINIDE [Suspect]
  8. GLIPIZIDE [Suspect]
  9. GLIBORNURIDE [Suspect]
  10. CIBENZOLINE [Suspect]
  11. DISOPYRAMIDE [Suspect]
  12. ATENOLOL [Suspect]
  13. FRUSEMIDE [Suspect]
  14. LOSARTAN [Suspect]
  15. IRBESARTAN [Suspect]
  16. VALSARTAN [Suspect]
  17. CANDESARTAN [Suspect]
  18. TELMISARTAN [Suspect]
  19. EPROSARTAN [Suspect]
  20. CAPTOPRIL [Suspect]
  21. ENALAPRIL [Suspect]
  22. NICARDIPINE HYDROCHLORIDE [Suspect]
  23. NIFEDIPINE [Suspect]
  24. NITRENDIPINE [Suspect]
  25. DILTIAZEM HCL [Suspect]
  26. VERAPAMIL [Suspect]

REACTIONS (1)
  - HYPOGLYCAEMIA [None]
